FAERS Safety Report 22333652 (Version 1)
Quarter: 2023Q2

REPORT INFORMATION
  Report Type: Spontaneous
  Country: US (occurrence: US)
  Receive Date: 20230517
  Receipt Date: 20230517
  Transmission Date: 20230722
  Serious: No
  Sender: FDA-Public Use
  Company Number: US-TEVA-2023-US-2884667

PATIENT
  Age: 74 Year
  Sex: Female

DRUGS (3)
  1. CLONIDINE [Suspect]
     Active Substance: CLONIDINE
     Indication: Product used for unknown indication
     Route: 065
  2. CLONIDINE [Suspect]
     Active Substance: CLONIDINE
     Dosage: .2 MILLIGRAM DAILY;
     Route: 065
  3. LUPKYNIS [Suspect]
     Active Substance: VOCLOSPORIN
     Indication: Product used for unknown indication
     Dosage: 15.8 MILLIGRAM DAILY;
     Route: 048
     Dates: start: 202212

REACTIONS (5)
  - Blood pressure systolic increased [Unknown]
  - Breast pain [Unknown]
  - Vision blurred [Unknown]
  - Glomerular filtration rate decreased [Unknown]
  - Urinary tract infection [Recovered/Resolved]
